FAERS Safety Report 8320700-0 (Version None)
Quarter: 2012Q2

REPORT INFORMATION
  Report Type: 
  Country: None (occurrence: None)
  Receive Date: 20120430
  Receipt Date: 20120418
  Transmission Date: 20120825
  Serious: Yes (Hospitalization)
  Sender: FDA-Public Use
  Company Number: DE-JNJFOC-20120408327

PATIENT
  Age: 15 Year
  Sex: Male
  Weight: 60 kg

DRUGS (7)
  1. CIPROFLOXACIN [Concomitant]
     Route: 065
     Dates: start: 20120401
  2. PREDNISOLONE [Concomitant]
     Route: 065
     Dates: start: 20111201
  3. REMICADE [Suspect]
     Indication: COLITIS ULCERATIVE
     Route: 042
     Dates: start: 20120216
  4. PANTOPRAZOLE [Concomitant]
     Route: 065
     Dates: start: 20120401
  5. METRONIDAZOLE [Concomitant]
     Route: 065
     Dates: start: 20120401
  6. THALIDOMIDE [Concomitant]
     Route: 065
     Dates: start: 20120201
  7. REMICADE [Suspect]
     Route: 042
     Dates: start: 20120416, end: 20120416

REACTIONS (2)
  - INFUSION RELATED REACTION [None]
  - URTICARIA [None]
